FAERS Safety Report 6768396-3 (Version None)
Quarter: 2010Q2

REPORT INFORMATION
  Report Type: 
  Country: None (occurrence: None)
  Receive Date: 20100614
  Receipt Date: 20100604
  Transmission Date: 20101027
  Serious: Yes (Hospitalization, Other)
  Sender: FDA-Public Use
  Company Number: US-ABBOTT-10P-163-0637475-00

PATIENT
  Sex: Male
  Weight: 154.36 kg

DRUGS (3)
  1. HUMIRA [Suspect]
     Indication: PSORIASIS
     Dates: start: 20090501, end: 20100201
  2. METHOTREXATE [Concomitant]
     Indication: DRUG USE FOR UNKNOWN INDICATION
     Dosage: INTERMITTENTLY
     Dates: start: 20011101, end: 20061101
  3. ENBREL [Concomitant]
     Indication: DRUG USE FOR UNKNOWN INDICATION
     Dates: start: 20061101, end: 20080101

REACTIONS (6)
  - B-CELL LYMPHOMA [None]
  - HAEMATEMESIS [None]
  - OROPHARYNGEAL PAIN [None]
  - PERITONSILLAR ABSCESS [None]
  - PHARYNGEAL HAEMORRHAGE [None]
  - TONSILLAR INFLAMMATION [None]
